FAERS Safety Report 5447507-6 (Version None)
Quarter: 2007Q3

REPORT INFORMATION
  Report Type: 
  Country: None (occurrence: None)
  Receive Date: 20070910
  Receipt Date: 20070905
  Transmission Date: 20080115
  Serious: Yes (Other)
  Sender: FDA-Public Use
  Company Number: B0484785A

PATIENT
  Age: 28 Year
  Sex: Female

DRUGS (5)
  1. PAXIL [Suspect]
     Indication: DEPRESSION
     Route: 048
     Dates: start: 20070115
  2. CHINESE MEDICINE [Concomitant]
     Indication: DRUG USE FOR UNKNOWN INDICATION
     Dosage: 7.5G PER DAY
     Route: 048
     Dates: start: 20070704, end: 20070807
  3. CHINESE MEDICINE [Concomitant]
     Indication: MYALGIA
     Dosage: 6G PER DAY
     Route: 048
     Dates: start: 20070704, end: 20070807
  4. LENDORMIN [Concomitant]
     Indication: INSOMNIA
     Dosage: .25MG PER DAY
     Route: 048
     Dates: start: 20070601
  5. ROHYPNOL [Concomitant]
     Indication: INSOMNIA
     Dosage: 2MG PER DAY
     Route: 065
     Dates: start: 20070516

REACTIONS (1)
  - LOSS OF CONSCIOUSNESS [None]
